FAERS Safety Report 10089573 (Version 1)
Quarter: 2014Q2

REPORT INFORMATION
  Report Type: Spontaneous
  Country: US (occurrence: None)
  Receive Date: 20140418
  Receipt Date: 20140418
  Transmission Date: 20141212
  Serious: Yes (Other)
  Sender: FDA-Public Use
  Company Number: None

PATIENT
  Age: 40 Year
  Sex: Female

DRUGS (5)
  1. ARIMIDEX [Suspect]
     Indication: BREAST CANCER
     Route: 048
  2. PRILOSEC [Concomitant]
  3. PROBIOTIC [Concomitant]
  4. LISINOPRIL [Concomitant]
  5. XANAX [Concomitant]

REACTIONS (2)
  - Joint stiffness [None]
  - Pain [None]
